FAERS Safety Report 9334261 (Version 2)
Quarter: 2014Q2

REPORT INFORMATION
  Report Type: Spontaneous
  Country: US (occurrence: US)
  Receive Date: 20130606
  Receipt Date: 20140519
  Transmission Date: 20141212
  Serious: No
  Sender: FDA-Public Use
  Company Number: US-AMGEN-USASP2013008538

PATIENT
  Sex: Female

DRUGS (4)
  1. PROLIA [Suspect]
     Indication: OSTEOPENIA
     Dosage: UNK
     Route: 065
     Dates: start: 201110
  2. FOLBIC [Concomitant]
  3. AMBIEN [Concomitant]
  4. LORAZEPAM [Concomitant]

REACTIONS (8)
  - Osteoporosis [Unknown]
  - Cystitis [Unknown]
  - Blood cholesterol increased [Unknown]
  - Back disorder [Unknown]
  - Tooth disorder [Unknown]
  - Back pain [Unknown]
  - Myalgia [Unknown]
  - Rash [Not Recovered/Not Resolved]
